FAERS Safety Report 9413543 (Version 3)
Quarter: 2013Q1

REPORT INFORMATION
  Report Type: Spontaneous
  Country: US (occurrence: None)
  Receive Date: 20120312
  Receipt Date: 20120418
  Transmission Date: 20140127
  Serious: Yes (Other)
  Sender: FDA-Public Use
  Company Number: 2012-1072

PATIENT
  Age: 61 Year
  Sex: Female
  Weight: 58 kg

DRUGS (8)
  1. DYSPORT (BOTLINUM TOXIN TYPE A) (BOTULINUM TOXIN TYPE A) [Suspect]
     Indication: SKIN WRINKLING
     Dosage: (SINGLE CYCLE)
     Dates: start: 20120224, end: 20120224
  2. DYSPORT (BOTLINUM TOXIN TYPE A) (BOTULINUM TOXIN TYPE A) [Suspect]
     Indication: SKIN WRINKLING
     Dosage: (SINGLE CYCLE)
     Dates: start: 20120224, end: 20120224
  3. DYSPORT (BOTLINUM TOXIN TYPE A) (BOTULINUM TOXIN TYPE A) [Suspect]
     Indication: OFF LABEL USE
     Dosage: (SINGLE CYCLE)
     Dates: start: 20120224, end: 20120224
  4. WELLBUTRIN (BUPROPION) [Concomitant]
  5. CALCIUM (CALCIUM) [Concomitant]
  6. AN UNSPECIFIED STATIN (HMG COA REDUCTASE INHIBITORS) [Concomitant]
  7. NUMBING CREAM NOS (ANAESTHETICS FOR TOPICAL USE) [Concomitant]
  8. ABOBTULINUMTOXIN A [Suspect]

REACTIONS (3)
  - Muscular weakness [None]
  - Hypotonic urinary bladder [None]
  - Palpitations [None]
